FAERS Safety Report 7306045-6 (Version None)
Quarter: 2011Q1

REPORT INFORMATION
  Report Type: 
  Country: None (occurrence: None)
  Receive Date: 20110222
  Receipt Date: 20110210
  Transmission Date: 20110831
  Serious: Yes (Death, Hospitalization)
  Sender: FDA-Public Use
  Company Number: FR-PFIZER INC-2009260635

PATIENT
  Age: 53 Year
  Sex: Male

DRUGS (3)
  1. EPIRUBICIN HYDROCHLORIDE [Suspect]
     Indication: GASTRIC CANCER
     Dosage: 225 MG, 1 CYCLE OF 3 COURSES
     Dates: start: 20080526, end: 20080707
  2. CISPLATIN [Suspect]
     Indication: GASTRIC CANCER
     Dosage: 276 MG, 1 CYCLE OF 3 COURSES
     Dates: start: 20080526, end: 20080707
  3. CAPECITABINE [Suspect]
     Indication: GASTRIC CANCER
     Dosage: 126000 MG, 1 CYCLE OF 3 COURSES
     Dates: start: 20080526, end: 20080707

REACTIONS (1)
  - GASTROINTESTINAL HAEMORRHAGE [None]
